FAERS Safety Report 5118360-5 (Version None)
Quarter: 2006Q4

REPORT INFORMATION
  Report Type: 
  Country: None (occurrence: None)
  Receive Date: 20061002
  Receipt Date: 20060921
  Transmission Date: 20070319
  Serious: Yes (Other)
  Sender: FDA-Public Use
  Company Number: PHEH2006US12068

PATIENT
  Age: 50 Year
  Sex: Male

DRUGS (5)
  1. METOPROLOL [Suspect]
     Indication: HYPERTENSION
  2. ATORVASTATIN CALCIUM [Suspect]
  3. CLOPIDOGREL [Suspect]
  4. LISINOPRIL [Suspect]
  5. ASPIRIN [Suspect]

REACTIONS (2)
  - MYOCARDIAL INFARCTION [None]
  - STENT PLACEMENT [None]
